FAERS Safety Report 24367087 (Version 2)
Quarter: 2024Q4

REPORT INFORMATION
  Report Type: Spontaneous
  Country: US (occurrence: US)
  Receive Date: 20240926
  Receipt Date: 20241203
  Transmission Date: 20250114
  Serious: Yes (Hospitalization)
  Sender: UROGEN PHARMA
  Company Number: US-UROGEN PHARMA LTD.-2024-UGN-000137

PATIENT

DRUGS (6)
  1. JELMYTO [Suspect]
     Active Substance: MITOMYCIN
     Indication: Product used for unknown indication
     Dosage: 15 MILLILITER, ONCE A WEEK (INSTILLATION)
     Dates: start: 20240911, end: 20240911
  2. JELMYTO [Suspect]
     Active Substance: MITOMYCIN
     Dosage: 15 MILLILITER, ONCE A WEEK (INSTILLATION)
     Dates: start: 20240917, end: 20240917
  3. JELMYTO [Suspect]
     Active Substance: MITOMYCIN
     Dosage: 15 MILLILITER, ONCE A WEEK(INSTILLATION)
     Dates: start: 202409, end: 202409
  4. JELMYTO [Suspect]
     Active Substance: MITOMYCIN
     Dosage: 15 MILLILITER, ONCE A WEEK(INSTILLATION)
     Dates: start: 2024, end: 2024
  5. JELMYTO [Suspect]
     Active Substance: MITOMYCIN
     Dosage: 15 MILLILITER, ONCE A WEEK(INSTILLATION)
     Dates: start: 2024, end: 2024
  6. JELMYTO [Suspect]
     Active Substance: MITOMYCIN
     Dosage: 15 MILLILITER, ONCE A WEEK(INSTILLATION)
     Dates: start: 2024, end: 2024

REACTIONS (1)
  - Renal pain [Recovered/Resolved]

NARRATIVE: CASE EVENT DATE: 20240911
